FAERS Safety Report 5145849-5 (Version None)
Quarter: 2006Q4

REPORT INFORMATION
  Report Type: 
  Country: None (occurrence: None)
  Receive Date: 20061108
  Receipt Date: 20061031
  Transmission Date: 20070319
  Serious: Yes (Death, Other)
  Sender: FDA-Public Use
  Company Number: PHBS2006NL16968

PATIENT
  Age: 64 Year
  Sex: Female

DRUGS (3)
  1. CLOZAPINE [Suspect]
  2. OLANZAPINE [Suspect]
  3. RISPERIDONE [Suspect]

REACTIONS (10)
  - CONDITION AGGRAVATED [None]
  - COORDINATION ABNORMAL [None]
  - DEMENTIA [None]
  - DYSARTHRIA [None]
  - DYSKINESIA [None]
  - GAZE PALSY [None]
  - HALLUCINATION, VISUAL [None]
  - LOSS OF CONSCIOUSNESS [None]
  - MOBILITY DECREASED [None]
  - SOMNOLENCE [None]
